FAERS Safety Report 5786837-5 (Version None)
Quarter: 2008Q2

REPORT INFORMATION
  Report Type: 
  Country: None (occurrence: None)
  Receive Date: 20080624
  Receipt Date: 20080617
  Transmission Date: 20081010
  Serious: Yes (Hospitalization)
  Sender: FDA-Public Use
  Company Number: JP-ALLERGAN-0714323US

PATIENT
  Sex: Male

DRUGS (9)
  1. BOTULINUM TOXIN TYPE A - GENERAL [Suspect]
     Indication: DRUG USE FOR UNKNOWN INDICATION
     Dosage: 300 UNITS, SINGLE
     Dates: start: 20071206, end: 20071206
  2. ALEVIATIN [Concomitant]
     Indication: EPILEPSY
     Dosage: 250 MG, SINGLE
     Route: 042
  3. ALEVIATIN [Concomitant]
     Dosage: 900 MG, QD
     Route: 048
  4. SELENICA-R [Concomitant]
     Indication: EPILEPSY
     Dosage: 200 MG, QD
     Route: 048
  5. SELENICA-R [Concomitant]
     Dosage: 800 MG, QD
     Route: 048
  6. SELENICA-R [Concomitant]
     Dosage: 1000 MG, QD
  7. PHENOBARBITAL TAB [Concomitant]
     Indication: EPILEPSY
     Dosage: 100 MG, QD
     Route: 030
  8. HYSERENIN [Concomitant]
     Indication: EPILEPSY
     Dosage: 1000 MG, QD
     Route: 048
  9. DIAZEPAM [Concomitant]
     Indication: EPILEPSY
     Dosage: 5 MG, SINGLE
     Route: 042

REACTIONS (1)
  - CONVULSION [None]
